FAERS Safety Report 6588686-7 (Version None)
Quarter: 2010Q1

REPORT INFORMATION
  Report Type: 
  Country: None (occurrence: None)
  Receive Date: 20100212
  Receipt Date: 20100128
  Transmission Date: 20100710
  Serious: Yes (Life-Threatening)
  Sender: FDA-Public Use
  Company Number: 2010EU000322

PATIENT
  Age: 12 Month
  Sex: Female
  Weight: 10 kg

DRUGS (8)
  1. PROGRAF [Suspect]
     Indication: LIVER TRANSPLANT
     Dosage: 1.1 MG, TID, ORAL, 0.5,  D/, ORAL
     Route: 048
     Dates: start: 20091113, end: 20091114
  2. PROGRAF [Suspect]
     Indication: LIVER TRANSPLANT
     Dosage: 1.1 MG, TID, ORAL, 0.5,  D/, ORAL
     Route: 048
     Dates: start: 20091115, end: 20091115
  3. PROGRAF [Suspect]
     Indication: LIVER TRANSPLANT
     Dosage: 1.1 MG, TID, ORAL, 0.5,  D/, ORAL
     Route: 048
     Dates: start: 20091121
  4. AMPHO-MORONAL (AMPHOTERICIN B) [Concomitant]
  5. GANCICLOVIR SODIUM [Concomitant]
  6. MERONEM (MEROPENEM TRIHYDRATE) [Concomitant]
  7. VANCOMYCIN HCL [Concomitant]
  8. SOLU-MEDROL [Concomitant]

REACTIONS (2)
  - DRUG ADMINISTRATION ERROR [None]
  - DRUG LEVEL INCREASED [None]
